FAERS Safety Report 16011270 (Version 1)
Quarter: 2019Q1

REPORT INFORMATION
  Report Type: Spontaneous
  Country: US (occurrence: US)
  Receive Date: 20190227
  Receipt Date: 20190227
  Transmission Date: 20190418
  Serious: No
  Sender: FDA-Public Use
  Company Number: US-TEVA-2019-US-1006671

PATIENT
  Sex: Male

DRUGS (1)
  1. VALSARTAN TABLETS ACTAVIS [Suspect]
     Active Substance: VALSARTAN
     Indication: BLOOD PRESSURE INCREASED
     Route: 065

REACTIONS (1)
  - Recalled product administered [Unknown]
